FAERS Safety Report 8101816-0 (Version None)
Quarter: 2012Q1

REPORT INFORMATION
  Report Type: 
  Country: None (occurrence: None)
  Receive Date: 20120131
  Receipt Date: 20120125
  Transmission Date: 20120608
  Serious: Yes (Death, Other)
  Sender: FDA-Public Use
  Company Number: PHHY2011NL109672

PATIENT
  Sex: Female

DRUGS (3)
  1. ASCAL [Concomitant]
     Dosage: 1DD100MG
  2. ZOMETA [Suspect]
     Indication: HEPATIC NEOPLASM MALIGNANT
     Dosage: 4 MG 1X PER 4 WEEKS
  3. ZOMETA [Suspect]
     Indication: HYPERCALCAEMIA
     Dosage: 4 MG/5ML 1X PER 28 DAYS
     Dates: start: 20111122

REACTIONS (2)
  - DEATH [None]
  - TERMINAL STATE [None]
